FAERS Safety Report 5275544-3 (Version None)
Quarter: 2007Q1

REPORT INFORMATION
  Report Type: 
  Country: None (occurrence: None)
  Receive Date: 20061213
  Receipt Date: 20051017
  Transmission Date: 20070707
  Serious: No
  Sender: FDA-Public Use
  Company Number: 2005UW15594

PATIENT
  Age: 47 Year
  Sex: Male
  Weight: 77.11 kg

DRUGS (1)
  1. SEROQUEL [Suspect]
     Indication: SLEEP DISORDER
     Dosage: 25 MG ONCE PO
     Route: 048
     Dates: start: 20050901, end: 20050901

REACTIONS (1)
  - PRIAPISM [None]
